FAERS Safety Report 7200349-3 (Version None)
Quarter: 2010Q4

REPORT INFORMATION
  Report Type: 
  Country: None (occurrence: None)
  Receive Date: 20101228
  Receipt Date: 20101221
  Transmission Date: 20110411
  Serious: Yes (Hospitalization)
  Sender: FDA-Public Use
  Company Number: FR-PFIZER INC-2010176232

PATIENT
  Sex: Female

DRUGS (6)
  1. ALDACTONE [Suspect]
     Dosage: 75 MG DAILY
     Route: 048
  2. HERCEPTIN [Suspect]
     Indication: BREAST CANCER
     Dosage: UNK
     Route: 048
     Dates: start: 20080801
  3. MOPRAL [Suspect]
     Route: 048
  4. MOTILIUM [Suspect]
     Dosage: 20 MG, UNK
     Route: 048
  5. DOLIPRANE [Suspect]
     Route: 048
  6. TEMESTA [Suspect]
     Route: 048

REACTIONS (5)
  - INTERSTITIAL LUNG DISEASE [None]
  - LUNG DISORDER [None]
  - MIXED CONNECTIVE TISSUE DISEASE [None]
  - PULMONARY FIBROSIS [None]
  - RAYNAUD'S PHENOMENON [None]
